FAERS Safety Report 4423838-3 (Version None)
Quarter: 2004Q3

REPORT INFORMATION
  Report Type: 
  Country: None (occurrence: None)
  Receive Date: 20040714
  Receipt Date: 20030516
  Transmission Date: 20050211
  Serious: Yes (Hospitalization, Other)
  Sender: FDA-Public Use
  Company Number: 200314708US

PATIENT
  Age: 71 Year
  Sex: Male

DRUGS (9)
  1. TAXOTERE [Suspect]
     Indication: PANCREATIC CARCINOMA
     Dosage: 30 MCG/M**2 IV
     Route: 042
     Dates: start: 20030423, end: 20030423
  2. TAXOTERE [Suspect]
     Indication: PANCREATIC CARCINOMA
     Dosage: 30 MCG/M**2 IV
     Route: 042
     Dates: start: 20030430, end: 20030430
  3. GEMCITABINE [Concomitant]
  4. XELODA [Concomitant]
  5. DEXAMETHASONE [Concomitant]
  6. SYNTHROID [Concomitant]
  7. OXYCODONE HYDROCHLORIDE (OXYCONTIN) [Concomitant]
  8. PANTOPRAZOLE SODIUM [Concomitant]
  9. WARFARIN SODIUM [Concomitant]

REACTIONS (4)
  - PRURITUS [None]
  - PYREXIA [None]
  - RASH [None]
  - SKIN DESQUAMATION [None]
